FAERS Safety Report 11242520 (Version 1)
Quarter: 2015Q3

REPORT INFORMATION
  Report Type: Spontaneous
  Country: IN (occurrence: None)
  Receive Date: 20150702
  Receipt Date: 20150702
  Transmission Date: 20151125
  Serious: Yes (Death, Hospitalization, Other)
  Sender: FDA-Public Use
  Company Number: IN2015GSK093631

PATIENT
  Age: 26 Year
  Sex: Female

DRUGS (3)
  1. ZIDOVUDINE (ZIDOVUDINE) UNKNOWN) [Suspect]
     Active Substance: ZIDOVUDINE
     Indication: HIV INFECTION
  2. LAMIVUDINE (LAMIVUDINE) UNKNOWN [Suspect]
     Active Substance: LAMIVUDINE
     Indication: HIV INFECTION
  3. NEVIRAPINE (NEVIRAPINE) [Suspect]
     Active Substance: NEVIRAPINE
     Indication: HIV INFECTION

REACTIONS (15)
  - Dyspepsia [None]
  - Abdominal pain [None]
  - Hepatomegaly [None]
  - Pallor [None]
  - Gastritis [None]
  - Vomiting [None]
  - Decreased appetite [None]
  - Pyrexia [None]
  - Asthenia [None]
  - Anaemia [None]
  - Liver function test abnormal [None]
  - Abdominal pain upper [None]
  - Bone marrow toxicity [None]
  - Cough [None]
  - Splenomegaly [None]
